FAERS Safety Report 7972215-7 (Version None)
Quarter: 2011Q4

REPORT INFORMATION
  Report Type: 
  Country: None (occurrence: None)
  Receive Date: 20111212
  Receipt Date: 20111207
  Transmission Date: 20120403
  Serious: Yes (Life-Threatening, Other)
  Sender: FDA-Public Use
  Company Number: JP-CELGENEUS-087-21880-11071532

PATIENT
  Sex: Male

DRUGS (15)
  1. LANSOPRAZOLE [Concomitant]
     Indication: PROPHYLAXIS
     Dosage: 15 MILLIGRAM
     Route: 048
     Dates: end: 20110208
  2. SODIUM BICARBONATE [Concomitant]
     Indication: PROPHYLAXIS
     Dosage: 20 MILLILITER
     Route: 041
     Dates: start: 20110122, end: 20110131
  3. REVLIMID [Suspect]
     Indication: MULTIPLE MYELOMA
     Dosage: 15 MILLIGRAM
     Route: 048
     Dates: start: 20110121, end: 20110125
  4. VALTREX [Concomitant]
     Indication: PROPHYLAXIS
     Dosage: 500 MILLIGRAM
     Route: 048
     Dates: end: 20110208
  5. FENTOS [Concomitant]
     Dosage: 4 MILLIGRAM
     Route: 062
     Dates: start: 20110120, end: 20110208
  6. REVLIMID [Suspect]
     Indication: REFRACTORY CANCER
  7. ASPIRIN [Concomitant]
     Indication: PROPHYLAXIS
     Dosage: 100 MILLIGRAM
     Route: 048
     Dates: end: 20110208
  8. PURSENNID [Concomitant]
     Dosage: 24 MILLIGRAM
     Route: 048
     Dates: end: 20110208
  9. LEVOFLOXACIN [Concomitant]
     Indication: PROPHYLAXIS
     Dosage: 800 MILLIGRAM
     Route: 048
     Dates: start: 20101207, end: 20110208
  10. DEXAMETHASONE ACETATE [Suspect]
     Indication: REFRACTORY CANCER
  11. SULFAMETHOXAZOLE AND TRIMETHOPRIM [Concomitant]
     Indication: PROPHYLAXIS
     Dosage: 1 TABLET
     Route: 048
     Dates: start: 20101129, end: 20110208
  12. ALLOPURINOL [Concomitant]
     Indication: PROPHYLAXIS
     Dosage: 50 MILLIGRAM
     Route: 048
     Dates: end: 20110208
  13. ITORAT [Concomitant]
     Indication: PROPHYLAXIS
     Dosage: 200 MILLIGRAM
     Route: 048
     Dates: start: 20101129, end: 20110208
  14. DEXAMETHASONE ACETATE [Suspect]
     Indication: MULTIPLE MYELOMA
     Dosage: 20 MILLIGRAM
     Route: 048
     Dates: start: 20110121, end: 20110121
  15. MAGNESIUM SULFATE [Concomitant]
     Dosage: 1500 MILLIGRAM
     Route: 048
     Dates: end: 20110208

REACTIONS (3)
  - THROMBOCYTOPENIA [None]
  - SHOCK HAEMORRHAGIC [None]
  - FEBRILE NEUTROPENIA [None]
